FAERS Safety Report 8351958-X (Version None)
Quarter: 2012Q2

REPORT INFORMATION
  Report Type: 
  Country: None (occurrence: None)
  Receive Date: 20120511
  Receipt Date: 20120507
  Transmission Date: 20120825
  Serious: No
  Sender: FDA-Public Use
  Company Number: US-PFIZER INC-2012112065

PATIENT
  Sex: Female
  Weight: 73.923 kg

DRUGS (1)
  1. PROTONIX [Suspect]
     Dosage: UNK

REACTIONS (2)
  - DIARRHOEA [None]
  - DRUG HYPERSENSITIVITY [None]
